FAERS Safety Report 7277687-1 (Version None)
Quarter: 2011Q1

REPORT INFORMATION
  Report Type: 
  Country: None (occurrence: None)
  Receive Date: 20110207
  Receipt Date: 20110131
  Transmission Date: 20110831
  Serious: Yes (Other)
  Sender: FDA-Public Use
  Company Number: US-PFIZER INC-2011009701

PATIENT
  Sex: Male

DRUGS (6)
  1. LISINOPRIL [Concomitant]
  2. OMEPRAZOLE [Concomitant]
  3. ASPIRIN [Concomitant]
  4. TORISEL [Suspect]
     Indication: RENAL CELL CARCINOMA
     Dosage: 25 MG/ WK
     Route: 042
     Dates: start: 20100112
  5. ATENOLOL [Concomitant]
  6. FLUOXETINE [Concomitant]

REACTIONS (2)
  - PERIORBITAL OEDEMA [None]
  - NAIL DISORDER [None]
